FAERS Safety Report 5745992-3 (Version None)
Quarter: 2008Q2

REPORT INFORMATION
  Report Type: 
  Country: None (occurrence: None)
  Receive Date: 20080520
  Receipt Date: 20080504
  Transmission Date: 20081010
  Serious: Yes (Hospitalization)
  Sender: FDA-Public Use
  Company Number: 2008PV035233

PATIENT
  Age: 60 Year
  Sex: Female

DRUGS (2)
  1. SYMLIN [Suspect]
     Indication: TYPE 2 DIABETES MELLITUS
     Dosage: 0.3 ML; SC; 20 MCG; SC
     Route: 058
     Dates: end: 20080101
  2. SYMLIN [Suspect]
     Indication: TYPE 2 DIABETES MELLITUS
     Dosage: 0.3 ML; SC; 20 MCG; SC
     Route: 058
     Dates: start: 20080101

REACTIONS (2)
  - CELLULITIS [None]
  - INCORRECT DOSE ADMINISTERED [None]
